FAERS Safety Report 20863392 (Version 2)
Quarter: 2022Q2

REPORT INFORMATION
  Report Type: Spontaneous
  Country: SE (occurrence: SE)
  Receive Date: 20220523
  Receipt Date: 20220609
  Transmission Date: 20220720
  Serious: Yes (Other)
  Sender: FDA-Public Use
  Company Number: None

PATIENT
  Age: 67 Year
  Sex: Female

DRUGS (7)
  1. SULFASALAZINE [Suspect]
     Active Substance: SULFASALAZINE
     Indication: Rheumatoid arthritis
     Dosage: 1000 MG, 2X/DAY
     Route: 048
     Dates: start: 20211010, end: 20211215
  2. VOLTAREN [Concomitant]
     Active Substance: DICLOFENAC SODIUM
     Dosage: 50 MG ONCE AS NEEDED
     Route: 054
  3. ATORVASTATIN [Concomitant]
     Active Substance: ATORVASTATIN
     Dosage: 10 MG, 1X/DAY
     Route: 048
  4. FERROUS SULFATE [Concomitant]
     Active Substance: FERROUS SULFATE
     Dosage: 100 MG, 1X/DAY
  5. LOSARTAN ORION [Concomitant]
     Dosage: 50 MG, 1X/DAY
     Route: 048
  6. CITALOPRAM EBB [Concomitant]
     Dosage: 40 MG, 1X/DAY
     Route: 048
  7. ACETYLCYSTEINE 1A FARMA [Concomitant]
     Dosage: 200 MG, AS NEEDED

REACTIONS (3)
  - Dyspnoea [Recovering/Resolving]
  - Spirometry abnormal [Recovering/Resolving]
  - Lung opacity [Recovering/Resolving]

NARRATIVE: CASE EVENT DATE: 20211125
